FAERS Safety Report 5788484-8 (Version None)
Quarter: 2008Q2

REPORT INFORMATION
  Report Type: 
  Country: None (occurrence: None)
  Receive Date: 20080626
  Receipt Date: 20080619
  Transmission Date: 20081010
  Serious: Yes (Disabling)
  Sender: FDA-Public Use
  Company Number: DE-RANBAXY-2008RR-16043

PATIENT

DRUGS (6)
  1. FOSINOPRIL SODIUM [Suspect]
     Dosage: 10 MG, QD
  2. TORSEMIDE [Concomitant]
     Dosage: 10 MG, QD
  3. BISOPROLOL FUMARATE [Concomitant]
     Dosage: 2.5 MG, QD
  4. AMIODARONE HCL [Concomitant]
     Dosage: 200 MG, QD
  5. SIMVASTATIN [Concomitant]
     Dosage: 20 MG, QD
  6. ALLOPURINOL [Concomitant]
     Dosage: 150 MG, QD

REACTIONS (6)
  - DIZZINESS [None]
  - ERECTILE DYSFUNCTION [None]
  - HYPERHIDROSIS [None]
  - MICTURITION DISORDER [None]
  - NIGHT SWEATS [None]
  - SLEEP DISORDER [None]
